FAERS Safety Report 16767022 (Version 1)
Quarter: 2019Q4

REPORT INFORMATION
  Report Type: Spontaneous
  Country: US (occurrence: US)
  Receive Date: 20190902
  Receipt Date: 20190902
  Transmission Date: 20200122
  Serious: Yes (Disabling)
  Sender: FDA-Public Use
  Company Number: None

PATIENT
  Age: 75 Year
  Sex: Female
  Weight: 76.5 kg

DRUGS (2)
  1. PANTOPROZOLE SODIUM DELAYED-RELEASE TABLETS USP 40 MG [Suspect]
     Active Substance: PANTOPRAZOLE SODIUM
     Indication: GASTROOESOPHAGEAL REFLUX DISEASE
     Dosage: ?          QUANTITY:1 TABLET(S);?
     Route: 048
     Dates: start: 20190314, end: 20190831
  2. PANTOPROZOLE SODIUM DELAYED-RELEASE TABLETS USP 40 MG [Suspect]
     Active Substance: PANTOPRAZOLE SODIUM
     Indication: ULCER
     Dosage: ?          QUANTITY:1 TABLET(S);?
     Route: 048
     Dates: start: 20190314, end: 20190831

REACTIONS (8)
  - Joint swelling [None]
  - Peripheral swelling [None]
  - Fatigue [None]
  - Gait disturbance [None]
  - Blood pressure fluctuation [None]
  - Headache [None]
  - Depression [None]
  - Pain [None]

NARRATIVE: CASE EVENT DATE: 20190801
